FAERS Safety Report 13774220 (Version 1)
Quarter: 2017Q3

REPORT INFORMATION
  Report Type: Spontaneous
  Country: US (occurrence: US)
  Receive Date: 20170720
  Receipt Date: 20170720
  Transmission Date: 20171127
  Serious: No
  Sender: FDA-Public Use
  Company Number: None

PATIENT
  Age: 44 Year
  Sex: Female
  Weight: 53.07 kg

DRUGS (4)
  1. VITAMIN D3 [Concomitant]
     Active Substance: CHOLECALCIFEROL
  2. VITAMIN B12 COMPLEX [Concomitant]
  3. MIRENA [Suspect]
     Active Substance: LEVONORGESTREL
     Dates: start: 20120720
  4. MVI [Concomitant]
     Active Substance: VITAMINS

REACTIONS (4)
  - Skin discolouration [None]
  - Eczema [None]
  - Chloasma [None]
  - Autoimmune dermatitis [None]

NARRATIVE: CASE EVENT DATE: 20170720
